FAERS Safety Report 17489949 (Version 1)
Quarter: 2020Q1

REPORT INFORMATION
  Report Type: Spontaneous
  Country: US (occurrence: US)
  Receive Date: 20200303
  Receipt Date: 20200303
  Transmission Date: 20200409
  Serious: No
  Sender: FDA-Public Use
  Company Number: US-AKORN PHARMACEUTICALS-2019AKN01798

PATIENT
  Age: 45 Year
  Sex: Female

DRUGS (2)
  1. IUD (UNSPECIFIED INTRAUTERINE DEVICE) [Concomitant]
     Route: 015
  2. MYORISAN [Suspect]
     Active Substance: ISOTRETINOIN
     Dosage: 40 MG, 1X/DAY
     Dates: start: 20190715, end: 20190815

REACTIONS (4)
  - Arthralgia [Unknown]
  - Skin exfoliation [Unknown]
  - Off label use [Recovered/Resolved]
  - Nail disorder [Unknown]

NARRATIVE: CASE EVENT DATE: 2019
